FAERS Safety Report 5169545-3 (Version None)
Quarter: 2006Q4

REPORT INFORMATION
  Report Type: 
  Country: None (occurrence: None)
  Receive Date: 20061204
  Receipt Date: 20061128
  Transmission Date: 20070319
  Serious: Yes (Hospitalization, Disabling)
  Sender: FDA-Public Use
  Company Number: HQWYE636426OCT06

PATIENT
  Age: 80 Year
  Sex: Female
  Weight: 79 kg

DRUGS (14)
  1. TYGACIL [Suspect]
     Dosage: 50 MG EVERY 12 HOURS, INTRAVENOUS
     Route: 042
     Dates: start: 20061010, end: 20061023
  2. ANZEMET [Concomitant]
  3. LORAZEPAM [Concomitant]
  4. DARVOCET-N 50 [Concomitant]
  5. DESYREL [Concomitant]
  6. GLUCOPHAGE [Concomitant]
  7. KLONOPIN [Concomitant]
  8. LASIX [Concomitant]
  9. LOVENOX [Concomitant]
  10. MEGACE [Concomitant]
  11. NOVOLOG [Concomitant]
  12. PERCOCET [Concomitant]
  13. REGLAN [Concomitant]
  14. RESTORIL [Concomitant]

REACTIONS (8)
  - ALANINE AMINOTRANSFERASE INCREASED [None]
  - ASPARTATE AMINOTRANSFERASE INCREASED [None]
  - BLOOD ALKALINE PHOSPHATASE INCREASED [None]
  - CHOLESTASIS [None]
  - GENERALISED OEDEMA [None]
  - LETHARGY [None]
  - MENTAL IMPAIRMENT [None]
  - RENAL FAILURE [None]
